FAERS Safety Report 5256971-7 (Version None)
Quarter: 2007Q1

REPORT INFORMATION
  Report Type: 
  Country: None (occurrence: None)
  Receive Date: 20070307
  Receipt Date: 20070302
  Transmission Date: 20070707
  Serious: Yes (Other)
  Sender: FDA-Public Use
  Company Number: GB-BRISTOL-MYERS SQUIBB COMPANY-13699392

PATIENT
  Age: 52 Year
  Sex: Female
  Weight: 45 kg

DRUGS (7)
  1. ATAZANAVIR SULFATE [Suspect]
  2. AMPRENAVIR [Suspect]
  3. COMBIVIR [Suspect]
  4. FOSAMPRENAVIR CALCIUM [Suspect]
     Route: 048
     Dates: start: 20061219, end: 20061228
  5. TRIZIVIR [Suspect]
     Route: 048
  6. RITONAVIR [Concomitant]
  7. ZIDOVUDINE [Concomitant]

REACTIONS (3)
  - MALAISE [None]
  - NEPHROLITHIASIS [None]
  - RASH [None]
